FAERS Safety Report 20727384 (Version 1)
Quarter: 2022Q2

REPORT INFORMATION
  Report Type: Spontaneous
  Country: US (occurrence: None)
  Receive Date: 20220419
  Receipt Date: 20220419
  Transmission Date: 20220721
  Serious: No
  Sender: FDA-Public Use
  Company Number: US-ROCHE-2858392

PATIENT
  Age: 56 Year
  Sex: Female
  Weight: 92.162 kg

DRUGS (19)
  1. KADCYLA [Suspect]
     Active Substance: ADO-TRASTUZUMAB EMTANSINE
     Indication: Breast cancer
     Route: 042
     Dates: start: 20210204
  2. ATENOLOL AND CHLORTHALIDONE [Concomitant]
     Active Substance: ATENOLOL\CHLORTHALIDONE
     Dosage: 50MG/25MG
     Route: 048
     Dates: start: 20170927
  3. LORAZEPAM [Concomitant]
     Active Substance: LORAZEPAM
     Indication: Nausea
     Route: 048
     Dates: start: 20210617
  4. LORAZEPAM [Concomitant]
     Active Substance: LORAZEPAM
     Route: 048
     Dates: start: 20210617
  5. CYCLOBENZAPRINE [Concomitant]
     Active Substance: CYCLOBENZAPRINE
     Dosage: 1-2 TABLETS (5MG TO 10MG) PER PATIENT DISCRETION
     Route: 048
     Dates: start: 20190829
  6. EFFEXOR XR [Concomitant]
     Active Substance: VENLAFAXINE HYDROCHLORIDE
     Dosage: ONE 37.5MG CAPSULE + ONE 150MG CAPSULE TOGETHER
     Route: 048
     Dates: start: 20161019
  7. GABAPENTIN [Concomitant]
     Active Substance: GABAPENTIN
     Route: 048
     Dates: start: 20191212, end: 20210202
  8. GABAPENTIN [Concomitant]
     Active Substance: GABAPENTIN
     Dosage: ONE 600MG CAPSULE + ONE 300MG CAPSULE TOGETHER
     Route: 048
     Dates: start: 20210202
  9. IMITREX [Concomitant]
     Active Substance: SUMATRIPTAN SUCCINATE
     Route: 048
     Dates: start: 20160727
  10. ONDANSETRON [Concomitant]
     Active Substance: ONDANSETRON
     Indication: Nausea
     Route: 048
     Dates: start: 20141202
  11. POTASSIUM [Concomitant]
     Active Substance: POTASSIUM
     Route: 048
     Dates: start: 20170712
  12. PROMETHAZINE [Concomitant]
     Active Substance: PROMETHAZINE HYDROCHLORIDE
     Indication: Nausea
     Route: 048
     Dates: start: 20150204
  13. PROTONIX [Concomitant]
     Active Substance: PANTOPRAZOLE SODIUM
     Route: 048
     Dates: start: 20180816
  14. FOSAPREPITANT [Concomitant]
     Active Substance: FOSAPREPITANT
     Dosage: ANTI-NAUSEA CYCLE PRIOR TO KADCYLA
     Route: 042
     Dates: start: 20210204
  15. ALOXI [Concomitant]
     Active Substance: PALONOSETRON HYDROCHLORIDE
     Dosage: PRIOR TO KADCYLA
     Route: 042
     Dates: start: 20210204
  16. DEXAMETHASONE [Concomitant]
     Active Substance: DEXAMETHASONE
     Dosage: PRIOR TO KADCYLA
     Route: 042
     Dates: start: 20210204
  17. FAMOTIDINE [Concomitant]
     Active Substance: FAMOTIDINE
     Dosage: PRIOR TO KADCYLA
     Route: 042
     Dates: start: 20210204
  18. DIPHENHYDRAMINE [Concomitant]
     Active Substance: DIPHENHYDRAMINE
     Dosage: PRIOR TO KADCYLA
     Route: 042
     Dates: start: 20210204
  19. FASLODEX [Concomitant]
     Active Substance: FULVESTRANT
     Indication: Breast cancer
     Dosage: TWO 250MG INJECTIONS AT ONCE
     Route: 030

REACTIONS (8)
  - Extravasation [Not Recovered/Not Resolved]
  - Swelling [Not Recovered/Not Resolved]
  - Chest discomfort [Recovered/Resolved]
  - Tenderness [Not Recovered/Not Resolved]
  - Erythema [Not Recovered/Not Resolved]
  - Pain [Not Recovered/Not Resolved]
  - Arthropod sting [Not Recovered/Not Resolved]
  - Pruritus [Not Recovered/Not Resolved]

NARRATIVE: CASE EVENT DATE: 20210617
